FAERS Safety Report 5831429-2 (Version None)
Quarter: 2008Q3

REPORT INFORMATION
  Report Type: 
  Country: None (occurrence: None)
  Receive Date: 20080801
  Receipt Date: 20080721
  Transmission Date: 20090109
  Serious: Yes (Death, Other)
  Sender: FDA-Public Use
  Company Number: AU-PFIZER INC-2008052297

PATIENT
  Age: 75 Year
  Sex: Male

DRUGS (7)
  1. LYRICA [Suspect]
     Indication: BACK PAIN
     Route: 048
  2. MORPHINE [Concomitant]
  3. NEURONTIN [Concomitant]
  4. LIPITOR [Concomitant]
  5. BUPRENORPHINE HCL [Concomitant]
  6. ZESTRIL [Concomitant]
     Route: 048
  7. WARFARIN SODIUM [Concomitant]

REACTIONS (3)
  - DIZZINESS [None]
  - FALL [None]
  - MYOCARDIAL INFARCTION [None]
